FAERS Safety Report 7450763-6 (Version None)
Quarter: 2011Q2

REPORT INFORMATION
  Report Type: 
  Country: None (occurrence: None)
  Receive Date: 20110422
  Receipt Date: 20110406
  Transmission Date: 20111010
  Serious: Yes (Hospitalization)
  Sender: FDA-Public Use
  Company Number: 030205

PATIENT
  Sex: Female

DRUGS (10)
  1. TEPRENONE [Concomitant]
  2. DICLOFENAX SODIUM [Concomitant]
  3. KETOPROFEN [Concomitant]
  4. DEXTROMETHAOPHAN HYDROBROMIDE [Concomitant]
  5. PROGRAF [Suspect]
     Indication: RHEUMATOID ARTHRITIS
     Dosage: (2 MG ORAL)
     Route: 048
     Dates: start: 20091124
  6. PREDNISOLONE [Suspect]
     Indication: RHEUMATOID ARTHRITIS
     Dosage: (5 MG ORAL)
     Route: 048
     Dates: start: 20081022
  7. RABEPRAZOLE SODIUM [Concomitant]
  8. AMBROXOL HYDROCHLORIDE [Concomitant]
  9. CIMZIA [Suspect]
     Indication: RHEUMATOID ARTHRITIS
     Dosage: (STUDY: 275-08-003; 400 MG AT WEEK 0, 2 AND 4. 200 MG FROM WEEK 6 TO WEEK 22. SUBCUTANEOUS), (200 MG
     Route: 058
     Dates: start: 20091222
  10. CIMZIA [Suspect]
     Indication: RHEUMATOID ARTHRITIS
     Dosage: (STUDY: 275-08-003; 400 MG AT WEEK 0, 2 AND 4. 200 MG FROM WEEK 6 TO WEEK 22. SUBCUTANEOUS), (200 MG
     Route: 058
     Dates: start: 20100709, end: 20110318

REACTIONS (13)
  - HAEMOGLOBIN DECREASED [None]
  - INFECTION [None]
  - ALANINE AMINOTRANSFERASE INCREASED [None]
  - BLOOD UREA INCREASED [None]
  - SEPTIC SHOCK [None]
  - BRONCHOPNEUMONIA [None]
  - ASPARTATE AMINOTRANSFERASE INCREASED [None]
  - FIBRIN DEGRADATION PRODUCTS INCREASED [None]
  - INTERNATIONAL NORMALISED RATIO INCREASED [None]
  - BLOOD CREATININE INCREASED [None]
  - PROTHROMBIN TIME PROLONGED [None]
  - FIBRIN D DIMER INCREASED [None]
  - ACTIVATED PARTIAL THROMBOPLASTIN TIME PROLONGED [None]
